FAERS Safety Report 17105954 (Version 3)
Quarter: 2020Q1

REPORT INFORMATION
  Report Type: Spontaneous
  Country: DE (occurrence: DE)
  Receive Date: 20191203
  Receipt Date: 20200311
  Transmission Date: 20200409
  Serious: Yes (Hospitalization)
  Sender: FDA-Public Use
  Company Number: NVSC2019DE052034

PATIENT
  Age: 89 Year
  Sex: Female

DRUGS (22)
  1. OXYCONTIN [Interacting]
     Active Substance: OXYCODONE HYDROCHLORIDE
     Indication: PAIN
     Dosage: UNK
     Route: 065
  2. MIRTAZAPINE. [Interacting]
     Active Substance: MIRTAZAPINE
     Indication: DEPRESSION
     Dosage: UNK
     Route: 042
  3. OXYCONTIN [Interacting]
     Active Substance: OXYCODONE HYDROCHLORIDE
     Indication: PAIN
     Dosage: UNK
     Route: 065
  4. NOVALGIN [Concomitant]
     Indication: PAIN
     Dosage: 2.5-5 G AT 2-4 ML/H, 2.5-5G OVER 24 H
     Route: 042
  5. LORAZEPAMUM [Suspect]
     Active Substance: LORAZEPAM
     Indication: DEPRESSION
     Dosage: UNK
     Route: 065
  6. HALOPERIDOL. [Concomitant]
     Active Substance: HALOPERIDOL
     Dosage: ONE DOSE
     Route: 065
  7. DUROGESIC [Concomitant]
     Active Substance: FENTANYL
     Dosage: 12.5 MICROGRAM, GIVEN AT A LOW DOSE
     Route: 065
  8. MIRTAZAPINE. [Interacting]
     Active Substance: MIRTAZAPINE
     Dosage: UNK
     Route: 065
  9. CEFEPIME [Concomitant]
     Active Substance: CEFEPIME HYDROCHLORIDE
     Indication: PRODUCT USED FOR UNKNOWN INDICATION
     Dosage: TWO TIMES, DOSE-ADJUSTED BASED ON KIDNEY FUNCTION
     Route: 042
  10. HALOPERIDOL. [Concomitant]
     Active Substance: HALOPERIDOL
     Indication: PRODUCT USED FOR UNKNOWN INDICATION
     Dosage: ONE DOSE
     Route: 065
  11. DUROGESIC [Concomitant]
     Active Substance: FENTANYL
     Indication: PAIN
     Dosage: 12.5 MICROGRAM, GIVEN AT A LOW DOSE
     Route: 065
  12. POTASSIUM CHLORIDE. [Concomitant]
     Active Substance: POTASSIUM CHLORIDE
     Indication: HYPOKALAEMIA
     Dosage: UNK
     Route: 065
  13. DIAZEPAM. [Concomitant]
     Active Substance: DIAZEPAM
     Indication: PRODUCT USED FOR UNKNOWN INDICATION
     Dosage: 5 MG, SEVERAL TIMES DAILY AS NEEDED
     Route: 054
  14. DUROGESIC [Concomitant]
     Active Substance: FENTANYL
     Indication: PAIN
     Dosage: 12.5 UG (GIVEN AT A LOW DOSE)
     Route: 065
  15. QUETIAPINE FUMARATE. [Suspect]
     Active Substance: QUETIAPINE FUMARATE
     Indication: DEPRESSION
     Dosage: INCREASED CONTINUOUSLY
     Route: 065
  16. PETHIDINE [Interacting]
     Active Substance: MEPERIDINE
     Indication: PAIN
     Dosage: GIVEN AT A DOSE OF 400-800 MG
     Route: 065
  17. CIPRAMIL [CITALOPRAM HYDROCHLORIDE] [Interacting]
     Active Substance: CITALOPRAM HYDROCHLORIDE
     Indication: DEPRESSION
     Dosage: UNK
     Route: 065
  18. MYDOCALM (TOLPERISONE HYDROCHLORIDE) [Interacting]
     Active Substance: TOLPERISONE HYDROCHLORIDE
     Indication: PAIN
     Dosage: 450 MG, UNK
     Route: 048
  19. DAFALGAN [Concomitant]
     Active Substance: ACETAMINOPHEN
     Indication: PAIN
     Dosage: UNK
     Route: 042
  20. DAFALGAN [Concomitant]
     Active Substance: ACETAMINOPHEN
     Indication: PAIN
     Dosage: UNK
     Route: 042
  21. MONURIL [Concomitant]
     Active Substance: FOSFOMYCIN TROMETHAMINE
     Indication: ESCHERICHIA INFECTION
     Dosage: SINGLE DOSE OF 3 G
     Route: 065
  22. MAGNESIUM [Concomitant]
     Active Substance: MAGNESIUM
     Indication: HYPOKALAEMIA
     Dosage: UNK
     Route: 065

REACTIONS (10)
  - Fall [Recovering/Resolving]
  - Delirium [Recovering/Resolving]
  - Pelvic fracture [Recovering/Resolving]
  - Serotonin syndrome [Recovering/Resolving]
  - Diarrhoea [Recovering/Resolving]
  - Hypertension [Recovering/Resolving]
  - Fracture [Recovering/Resolving]
  - Respiratory alkalosis [Recovering/Resolving]
  - Drug interaction [Recovering/Resolving]
  - Hallucination [Recovering/Resolving]

NARRATIVE: CASE EVENT DATE: 2015
